FAERS Safety Report 9507500 (Version 1)
Quarter: 2013Q3

REPORT INFORMATION
  Report Type: Spontaneous
  Country: US (occurrence: US)
  Receive Date: 20130909
  Receipt Date: 20130909
  Transmission Date: 20140515
  Serious: Yes (Other)
  Sender: FDA-Public Use
  Company Number: US-ELI_LILLY_AND_COMPANY-US201308009003

PATIENT
  Sex: Female

DRUGS (1)
  1. CYMBALTA [Suspect]

REACTIONS (8)
  - Loss of consciousness [Unknown]
  - Convulsion [Unknown]
  - Suicidal ideation [Unknown]
  - Agitation [Unknown]
  - Hyperhidrosis [Unknown]
  - Headache [Unknown]
  - Weight increased [Unknown]
  - Abnormal behaviour [Unknown]
